FAERS Safety Report 10184295 (Version 1)
Quarter: 2014Q2

REPORT INFORMATION
  Report Type: Spontaneous
  Country: US (occurrence: US)
  Receive Date: 20140520
  Receipt Date: 20140520
  Transmission Date: 20141212
  Serious: No
  Sender: FDA-Public Use
  Company Number: US-GILEAD-2014-0102883

PATIENT
  Age: 64 Year
  Sex: Female

DRUGS (2)
  1. LETAIRIS [Suspect]
     Indication: PULMONARY HYPERTENSION
     Dosage: 10 MG, QD
     Route: 065
     Dates: start: 20120125
  2. TYVASO [Suspect]
     Indication: PULMONARY HYPERTENSION
     Dates: start: 20140421

REACTIONS (2)
  - Throat irritation [Not Recovered/Not Resolved]
  - Fluid retention [Not Recovered/Not Resolved]
